FAERS Safety Report 22314259 (Version 2)
Quarter: 2023Q2

REPORT INFORMATION
  Report Type: Spontaneous
  Country: RO (occurrence: RO)
  Receive Date: 20230512
  Receipt Date: 20230602
  Transmission Date: 20230722
  Serious: Yes (Hospitalization)
  Sender: FDA-Public Use
  Company Number: RO-ALNYLAM PHARMACEUTICALS, INC.-ALN-2023-002015

PATIENT

DRUGS (10)
  1. GIVOSIRAN [Suspect]
     Active Substance: GIVOSIRAN
     Indication: Porphyria acute
     Dosage: UNK
     Route: 065
     Dates: start: 20230308
  2. GIVOSIRAN [Suspect]
     Active Substance: GIVOSIRAN
     Indication: Nerve injury
     Dosage: UNK
     Route: 065
     Dates: start: 20230404
  3. GIVOSIRAN [Suspect]
     Active Substance: GIVOSIRAN
     Indication: Quadriplegia
  4. HUMAN HEMIN [Concomitant]
     Indication: Porphyria acute
     Dosage: UNK
     Route: 065
     Dates: start: 20230303
  5. LEVETIRACETAM [Concomitant]
     Active Substance: LEVETIRACETAM
     Indication: Myoclonus
     Dosage: 500 MILLIGRAM
     Route: 065
     Dates: start: 20230306
  6. DULOXETINE [Concomitant]
     Active Substance: DULOXETINE
     Indication: Myoclonus
     Dosage: 30 MILLIGRAM
     Route: 065
  7. .ALPHA.-LIPOIC ACID [Concomitant]
     Active Substance: .ALPHA.-LIPOIC ACID
     Indication: Product used for unknown indication
     Dosage: UNK
     Route: 065
  8. BLOOD, BOVINE [Concomitant]
     Active Substance: BLOOD, BOVINE
     Indication: Product used for unknown indication
     Dosage: UNK
     Route: 065
  9. Milgamma [Concomitant]
     Indication: Product used for unknown indication
     Dosage: UNK
     Route: 065
  10. MAGNESIUM [Concomitant]
     Active Substance: MAGNESIUM
     Indication: Product used for unknown indication
     Route: 065

REACTIONS (12)
  - Pain [Unknown]
  - Trismus [Unknown]
  - Increased bronchial secretion [Unknown]
  - Klebsiella infection [Unknown]
  - Pseudomonas infection [Unknown]
  - Acinetobacter infection [Unknown]
  - Normochromic normocytic anaemia [Unknown]
  - Hepatic cytolysis [Unknown]
  - Multisystem inflammatory syndrome [Unknown]
  - Nitrite urine present [Unknown]
  - Leukocyturia [Unknown]
  - Enterococcal infection [Unknown]

NARRATIVE: CASE EVENT DATE: 20230329
